FAERS Safety Report 4445543-X (Version None)
Quarter: 2004Q3

REPORT INFORMATION
  Report Type: 
  Country: None (occurrence: None)
  Receive Date: 20040908
  Receipt Date: 20040908
  Transmission Date: 20050211
  Serious: Yes (Hospitalization)
  Sender: FDA-Public Use
  Company Number: None

PATIENT
  Age: 48 Year
  Sex: Female

DRUGS (4)
  1. MORPHINE [Suspect]
     Indication: PAIN
     Dosage: 5MG IV
     Route: 042
  2. SULFASALAZINE [Concomitant]
  3. RABEPRAZOLE SODIUM [Concomitant]
  4. CELECOXIB [Concomitant]

REACTIONS (5)
  - CHEST PAIN [None]
  - DYSPNOEA [None]
  - HEADACHE [None]
  - NECK PAIN [None]
  - THROAT TIGHTNESS [None]
